FAERS Safety Report 18081789 (Version 1)
Quarter: 2020Q3

REPORT INFORMATION
  Report Type: Other
  Country: US (occurrence: US)
  Receive Date: 20200728
  Receipt Date: 20200728
  Transmission Date: 20201103
  Serious: Yes (Other)
  Sender: FDA-Public Use
  Company Number: US-ROCHE-2644128

PATIENT
  Sex: Female

DRUGS (2)
  1. KADCYLA [Suspect]
     Active Substance: ADO-TRASTUZUMAB EMTANSINE
     Indication: BREAST CANCER
     Dosage: INFUSE 224.6MG INTRAVENOUSLY EVERY 3 WEEK(S)
     Route: 042
  2. KADCYLA [Suspect]
     Active Substance: ADO-TRASTUZUMAB EMTANSINE
     Dosage: INFUSE 224.6MG INTRAVENOUSLY EVERY 3 WEEK(S)
     Route: 042

REACTIONS (2)
  - Decreased activity [Unknown]
  - Brain oedema [Unknown]
